FAERS Safety Report 17426503 (Version 4)
Quarter: 2020Q2

REPORT INFORMATION
  Report Type: Spontaneous
  Country: US (occurrence: US)
  Receive Date: 20200217
  Receipt Date: 20200623
  Transmission Date: 20200713
  Serious: Yes (Death, Life-Threatening)
  Sender: FDA-Public Use
  Company Number: US-VIFOR (INTERNATIONAL) INC.-VIT-2020-03448

PATIENT
  Age: 42 Year
  Sex: Male
  Weight: 68.6 kg

DRUGS (22)
  1. MIRCERA [Suspect]
     Active Substance: METHOXY POLYETHYLENE GLYCOL-EPOETIN BETA
     Indication: NEPHROGENIC ANAEMIA
     Route: 040
     Dates: start: 20191224
  2. VENOFER [Suspect]
     Active Substance: IRON SUCROSE
     Route: 040
     Dates: start: 20191229, end: 20191229
  3. DOXAZOSIN [Concomitant]
     Active Substance: DOXAZOSIN MESYLATE
     Route: 048
  4. ELIQUIS [Concomitant]
     Active Substance: APIXABAN
     Route: 048
  5. MIRCERA [Suspect]
     Active Substance: METHOXY POLYETHYLENE GLYCOL-EPOETIN BETA
     Dosage: 4TH DOSE
     Route: 040
     Dates: start: 20200205
  6. LANTUS SOLOSTAR [Concomitant]
     Active Substance: INSULIN GLARGINE
     Dosage: PEN (INJECT 10 UNITS)
     Route: 058
  7. ONDANSETRON HCL [Concomitant]
     Active Substance: ONDANSETRON HYDROCHLORIDE
     Dosage: AS NEEDED.
     Route: 048
  8. VENOFER [Suspect]
     Active Substance: IRON SUCROSE
     Route: 040
     Dates: start: 20191211, end: 20191211
  9. VENOFER [Suspect]
     Active Substance: IRON SUCROSE
     Route: 040
     Dates: start: 20200116, end: 20200116
  10. VITAMIN D2 [Concomitant]
     Active Substance: ERGOCALCIFEROL
     Dosage: FOR 8 WEEKS, THEN PLAN MONTHLY
     Route: 048
  11. RENVELA [Concomitant]
     Active Substance: SEVELAMER CARBONATE
     Dosage: 2 TABLETS WITH MEALS
     Route: 048
  12. VENOFER [Suspect]
     Active Substance: IRON SUCROSE
     Route: 040
     Dates: start: 20191211, end: 20191211
  13. VENOFER [Suspect]
     Active Substance: IRON SUCROSE
     Route: 040
     Dates: start: 20191231, end: 20191231
  14. PANTOPRAZOLE [Concomitant]
     Active Substance: PANTOPRAZOLE
     Dosage: DELAYED RELEASE
     Route: 048
  15. PHOSLYRA [Concomitant]
     Active Substance: CALCIUM ACETATE
     Dosage: 667 MG (169 MG CALCIUM)/ 5 ML
     Route: 048
  16. VENOFER [Suspect]
     Active Substance: IRON SUCROSE
     Route: 040
     Dates: start: 20191216, end: 20191216
  17. VENOFER [Suspect]
     Active Substance: IRON SUCROSE
     Route: 040
     Dates: start: 20200205, end: 20200205
  18. VENOFER [Suspect]
     Active Substance: IRON SUCROSE
     Indication: IRON DEFICIENCY ANAEMIA
     Route: 040
     Dates: start: 20191204, end: 20191204
  19. VENOFER [Suspect]
     Active Substance: IRON SUCROSE
     Route: 040
     Dates: start: 20191218, end: 20191218
  20. VENOFER [Suspect]
     Active Substance: IRON SUCROSE
     Route: 040
     Dates: start: 20191226, end: 20191226
  21. VENOFER [Suspect]
     Active Substance: IRON SUCROSE
     Dosage: MAINTENANCE DOSE
     Route: 040
     Dates: start: 20200131, end: 20200131
  22. AMLODIPINE [Concomitant]
     Active Substance: AMLODIPINE BESYLATE
     Route: 048

REACTIONS (10)
  - Respiratory arrest [Fatal]
  - Cardiac arrest [Fatal]
  - Wheezing [Fatal]
  - Arrhythmia [Fatal]
  - Unresponsive to stimuli [Fatal]
  - Loss of consciousness [Fatal]
  - Bronchospasm [Fatal]
  - Hypotension [Fatal]
  - Seizure [Fatal]
  - Respiratory distress [Fatal]

NARRATIVE: CASE EVENT DATE: 20200205
